FAERS Safety Report 24691522 (Version 1)
Quarter: 2024Q4

REPORT INFORMATION
  Report Type: Spontaneous
  Country: AT (occurrence: AT)
  Receive Date: 20241203
  Receipt Date: 20241203
  Transmission Date: 20250114
  Serious: Yes (Other)
  Sender: PFIZER
  Company Number: AT-AMGEN-AUTSP2024225196

PATIENT
  Age: 56 Year
  Sex: Male

DRUGS (11)
  1. BEVACIZUMAB [Suspect]
     Active Substance: BEVACIZUMAB
     Indication: Product used for unknown indication
     Dosage: UNK
     Dates: start: 202303
  2. VECTIBIX [Suspect]
     Active Substance: PANITUMUMAB
     Indication: Colorectal cancer metastatic
     Dosage: FREQ:2 WK;6 MILLIGRAM/KILOGRAM, Q2WK (UNIT=VIAL - LIQUID)
     Dates: start: 202403, end: 2024
  3. VECTIBIX [Suspect]
     Active Substance: PANITUMUMAB
     Dosage: FREQ:2 WK;6 MILLIGRAM/KILOGRAM, Q2WK (UNIT=VIAL - LIQUID)
     Dates: start: 202410
  4. CAPECITABINE [Concomitant]
     Active Substance: CAPECITABINE
     Dosage: UNK
     Dates: start: 202303
  5. OXALIPLATIN [Concomitant]
     Active Substance: OXALIPLATIN
     Dosage: UNK
     Dates: start: 202303
  6. LEUCOVORIN CALCIUM [Concomitant]
     Active Substance: LEUCOVORIN CALCIUM
     Dosage: 75 %
     Dates: start: 202403
  7. LEUCOVORIN CALCIUM [Concomitant]
     Active Substance: LEUCOVORIN CALCIUM
     Dosage: 75 %
     Dates: start: 202410
  8. FLUOROURACIL [Concomitant]
     Active Substance: FLUOROURACIL
     Dosage: 75 %
     Dates: start: 202403
  9. FLUOROURACIL [Concomitant]
     Active Substance: FLUOROURACIL
     Dosage: 75 %
     Dates: start: 202410
  10. IRINOTECAN HYDROCHLORIDE [Concomitant]
     Active Substance: IRINOTECAN HYDROCHLORIDE
     Dosage: 75 %
     Dates: start: 202403
  11. IRINOTECAN HYDROCHLORIDE [Concomitant]
     Active Substance: IRINOTECAN HYDROCHLORIDE
     Dosage: 75 %
     Dates: start: 202410

REACTIONS (2)
  - Renal failure [Unknown]
  - Rash [Unknown]

NARRATIVE: CASE EVENT DATE: 20231101
